FAERS Safety Report 9174203 (Version 1)
Quarter: 2013Q1

REPORT INFORMATION
  Report Type: Spontaneous
  Country: IT (occurrence: None)
  Receive Date: 20130318
  Receipt Date: 20130318
  Transmission Date: 20140127
  Serious: Yes (Hospitalization, Other)
  Sender: FDA-Public Use
  Company Number: SYM-2013-01698

PATIENT
  Age: 72 Year
  Sex: Male

DRUGS (11)
  1. FLOUROURACIL [Suspect]
     Indication: COLORECTAL CANCER METASTATIC
     Route: 040
     Dates: start: 20121115, end: 20121115
  2. AFLIBERCEPT [Suspect]
     Indication: COLORECTAL CANCER METASTATIC
     Dosage: 1 HR. IV INFUSION EV. 2 WKS. W/IRINOTECAN, 5-FLOUROURACIL + LEUCOVORIN).
     Route: 042
     Dates: start: 20121115, end: 20121115
  3. IRINOTECAN (IRINOTECAN) [Suspect]
     Indication: COLORECTAL CANCER METASTATIC
     Route: 042
     Dates: start: 20121115, end: 20121115
  4. LEUCOVORIN [Suspect]
     Indication: COLORECTAL CANCER METASTATIC
     Route: 042
     Dates: start: 20121115, end: 20121115
  5. ACE INHIBITOR NOS (ACE INHIBITORS) (NULL) [Concomitant]
  6. DIURETICS (DIURETICS) [Concomitant]
  7. LANSOPRAZOLE (LANSOPRAZOLE) (LANSOPRAZOLE) [Concomitant]
  8. INSULIN (INSULIN) (INSULIN) [Concomitant]
  9. DIGOXIN (DIGOXIN) (DIGOXIN) [Concomitant]
  10. TAPAZOLE (THIAMAZOLE) (THIAMAZOLE) [Concomitant]
  11. ANTIBIOTICS (ANTIBIOTICS) [Concomitant]

REACTIONS (10)
  - Ileus paralytic [None]
  - Hypokalaemia [None]
  - Hyponatraemia [None]
  - General physical health deterioration [None]
  - Atrial flutter [None]
  - Shock [None]
  - Bundle branch block right [None]
  - Ventricular extrasystoles [None]
  - Abdominal pain [None]
  - Pain [None]
